FAERS Safety Report 7257432-6 (Version None)
Quarter: 2011Q1

REPORT INFORMATION
  Report Type: 
  Country: None (occurrence: None)
  Receive Date: 20110129
  Receipt Date: 20100512
  Transmission Date: 20110831
  Serious: No
  Sender: FDA-Public Use
  Company Number: US-ABBOTT-10P-163-0643888-00

PATIENT
  Age: 80 Year
  Sex: Female

DRUGS (5)
  1. PLAVIX [Concomitant]
  2. ZIAC [Concomitant]
     Dosage: 5/6.25 MG
  3. HUMIRA [Suspect]
     Indication: PSORIATIC ARTHROPATHY
     Dates: start: 20071025
  4. MOBIC [Concomitant]
  5. PREMARIN [Concomitant]

REACTIONS (3)
  - INJECTION SITE PAIN [None]
  - WRONG TECHNIQUE IN DRUG USAGE PROCESS [None]
  - INJECTION SITE HAEMATOMA [None]
